FAERS Safety Report 5000544-8 (Version None)
Quarter: 2006Q2

REPORT INFORMATION
  Report Type: 
  Country: None (occurrence: None)
  Receive Date: 20060512
  Receipt Date: 20050830
  Transmission Date: 20061013
  Serious: No
  Sender: FDA-Public Use
  Company Number: US-BRISTOL-MYERS SQUIBB COMPANY-13094834

PATIENT
  Age: 71 Year
  Sex: Female
  Weight: 60 kg

DRUGS (3)
  1. CYTOXAN [Suspect]
     Indication: LEUKAEMIA
     Dates: start: 20050624
  2. TYLENOL (CAPLET) [Concomitant]
     Indication: PAIN
  3. DARVOCET [Concomitant]
     Indication: PAIN

REACTIONS (3)
  - BURNING SENSATION [None]
  - CONSTIPATION [None]
  - CYSTITIS [None]
